FAERS Safety Report 18700154 (Version 1)
Quarter: 2021Q1

REPORT INFORMATION
  Report Type: Report from Study
  Country: US (occurrence: US)
  Receive Date: 20210105
  Receipt Date: 20210105
  Transmission Date: 20210419
  Serious: Yes (Hospitalization, Disabling, Other)
  Sender: FDA-Public Use
  Company Number: US-SA-2017SA263574

PATIENT

DRUGS (1)
  1. ALEMTUZUMAB [Suspect]
     Active Substance: ALEMTUZUMAB
     Indication: MULTIPLE SCLEROSIS
     Dosage: 12 MG, QD
     Route: 041
     Dates: start: 20161128, end: 20161202

REACTIONS (7)
  - Fall [Not Recovered/Not Resolved]
  - Abdominal discomfort [Recovered/Resolved]
  - Blood pressure increased [Recovered/Resolved]
  - Fatigue [Recovered/Resolved]
  - Platelet count decreased [Unknown]
  - Immune thrombocytopenia [Unknown]
  - Vomiting [Recovered/Resolved]

NARRATIVE: CASE EVENT DATE: 20161130
